FAERS Safety Report 17065380 (Version 1)
Quarter: 2019Q4

REPORT INFORMATION
  Report Type: Spontaneous
  Country: US (occurrence: US)
  Receive Date: 20191122
  Receipt Date: 20191122
  Transmission Date: 20200122
  Serious: Yes (Hospitalization)
  Sender: FDA-Public Use
  Company Number: US-INCYTE CORPORATION-2019IN011541

PATIENT

DRUGS (22)
  1. ALLOPURINOL. [Concomitant]
     Active Substance: ALLOPURINOL
     Dosage: 150 MILLIGRAM, 1 IN 1 DAY
     Route: 048
     Dates: start: 20181128
  2. LISINOPRIL. [Concomitant]
     Active Substance: LISINOPRIL
     Indication: HYPERTENSION
     Dosage: 40 MILLIGRAM, 1 IN 1 DAY
     Route: 048
     Dates: start: 201712
  3. FERROUS SULFATE. [Concomitant]
     Active Substance: FERROUS SULFATE
     Indication: SUPPLEMENTATION THERAPY
     Dosage: 27 MILLIGRAM, 1 IN 1 DAY
     Route: 048
     Dates: start: 20190306
  4. JAKAFI [Suspect]
     Active Substance: RUXOLITINIB
     Indication: MYELOFIBROSIS
     Dosage: 20 MILLIGRAM 2 IN 1 DAY
     Route: 048
     Dates: start: 20181128, end: 20190122
  5. NAVITOCLAX [Suspect]
     Active Substance: NAVITOCLAX
     Dosage: 100 MILLIGRAM, 1 IN 1 DAY
     Route: 048
     Dates: start: 20190109, end: 20190319
  6. FINASTERIDE. [Concomitant]
     Active Substance: FINASTERIDE
     Indication: PROSTATE CANCER
     Dosage: 5 MILLIGRAM, 1 IN 1 DAY
     Route: 048
     Dates: start: 20170209
  7. NAVITOCLAX [Suspect]
     Active Substance: NAVITOCLAX
     Dosage: 100 MILLIGRAM, 1 IN 1 DAY
     Route: 048
     Dates: start: 20181205, end: 20181211
  8. NAVITOCLAX [Suspect]
     Active Substance: NAVITOCLAX
     Dosage: 200 MILLIGRAM, 1 IN 1 DAY
     Route: 048
     Dates: start: 20190320, end: 20190416
  9. ALLOPURINOL. [Concomitant]
     Active Substance: ALLOPURINOL
     Indication: HYPERURICAEMIA
     Dosage: 300 MILLIGRAM, 2 IN 1 DAY
     Route: 048
     Dates: start: 20181108, end: 20181109
  10. VITAMIN B12 [Concomitant]
     Active Substance: CYANOCOBALAMIN
     Indication: SUPPLEMENTATION THERAPY
     Dosage: 1 TABLET  IN 1 DAY
     Route: 048
     Dates: start: 20170209
  11. ZOFRAN [Concomitant]
     Active Substance: ONDANSETRON HYDROCHLORIDE
     Indication: PROPHYLAXIS OF NAUSEA AND VOMITING
     Dosage: 4 MILLIGRAM AS REQUIRED
     Route: 048
     Dates: start: 20181128
  12. NAVITOCLAX [Suspect]
     Active Substance: NAVITOCLAX
     Indication: MYELOFIBROSIS
     Dosage: 50 MILLIGRAM, 1 IN 1 DAY
     Route: 048
     Dates: start: 20181128, end: 20181204
  13. NAVITOCLAX [Suspect]
     Active Substance: NAVITOCLAX
     Dosage: 100 MILLIGRAM, 1 IN 1 DAY
     Route: 048
     Dates: start: 20181212, end: 20181218
  14. NAVITOCLAX [Suspect]
     Active Substance: NAVITOCLAX
     Dosage: 200 MILLIGRAM, 1 IN 1 DAY
     Route: 048
     Dates: start: 20181212, end: 20190108
  15. HYDROCHLOROTHIAZIDE. [Concomitant]
     Active Substance: HYDROCHLOROTHIAZIDE
     Indication: HYPERTENSION
     Dosage: 12.5 MILLIGRAM, 1 IN 1 DAY
     Route: 048
     Dates: start: 201712
  16. VITAMINS NOS [Concomitant]
     Active Substance: VITAMINS
     Indication: SUPPLEMENTATION THERAPY
     Dosage: 1 CAPSULE, IN 1 DAY
     Route: 048
     Dates: start: 20170209
  17. ASPIRIN [ACETYLSALICYLIC ACID] [Concomitant]
     Active Substance: ASPIRIN
     Indication: CARDIOVASCULAR EVENT PROPHYLAXIS
     Dosage: 81 MILLIGRAM, 1 IN 1 DAY
     Route: 048
     Dates: start: 20170209, end: 20181017
  18. FERROUS GLUCONATE [Concomitant]
     Active Substance: FERROUS GLUCONATE
     Indication: SUPPLEMENTATION THERAPY
     Dosage: 240/27 MG 1 IN 1 DAY
     Route: 048
     Dates: start: 20190306
  19. JAKAFI [Suspect]
     Active Substance: RUXOLITINIB
     Dosage: 10 MILLIGRAM, 2 IN 1 DAY
     Route: 048
     Dates: start: 20190123
  20. NAVITOCLAX [Suspect]
     Active Substance: NAVITOCLAX
     Dosage: 300 MILLIGRAM, 1 IN 1 DAY
     Route: 048
     Dates: start: 20190417
  21. HYDROCHLOROTHIAZIDE. [Concomitant]
     Active Substance: HYDROCHLOROTHIAZIDE
     Indication: OEDEMA PERIPHERAL
     Dosage: 12.5 MILLIGRAM, QD
     Route: 048
     Dates: start: 20190306
  22. REMERON [Concomitant]
     Active Substance: MIRTAZAPINE
     Indication: DECREASED APPETITE
     Dosage: 15 MILLIGRAM, 1 IN 1 DAY
     Route: 048
     Dates: start: 20190109

REACTIONS (1)
  - Colitis [Recovered/Resolved]

NARRATIVE: CASE EVENT DATE: 20191012
